FAERS Safety Report 6037323-9 (Version None)
Quarter: 2009Q1

REPORT INFORMATION
  Report Type: 
  Country: None (occurrence: None)
  Receive Date: 20090114
  Receipt Date: 20090107
  Transmission Date: 20090719
  Serious: Yes (Other)
  Sender: FDA-Public Use
  Company Number: PHEH2009US00597

PATIENT
  Sex: Female

DRUGS (11)
  1. AREDIA [Suspect]
     Dosage: 60 MG EVERY 3 MONTHS
     Route: 042
     Dates: start: 20020701, end: 20071101
  2. FOSAMAX [Suspect]
     Indication: BREAST CANCER
     Dosage: 70 MG, QW
     Route: 048
  3. ZOLOFT [Concomitant]
  4. TAPAZOLE [Concomitant]
  5. POTASSIUM CHLORIDE [Concomitant]
  6. VITAMIN D [Concomitant]
  7. CALCIUM [Concomitant]
  8. MULTI-VITAMINS [Concomitant]
  9. RADIOTHERAPY [Concomitant]
  10. ANTINEOPLASTIC AGENTS [Concomitant]
  11. OMEGA [Concomitant]

REACTIONS (1)
  - BONE DISORDER [None]
